FAERS Safety Report 9716550 (Version 3)
Quarter: 2013Q4

REPORT INFORMATION
  Report Type: Spontaneous
  Country: US (occurrence: US)
  Receive Date: 20131127
  Receipt Date: 20131223
  Transmission Date: 20140711
  Serious: No
  Sender: FDA-Public Use
  Company Number: US-PFIZER INC-2013335219

PATIENT
  Age: 40 Year
  Sex: Female

DRUGS (10)
  1. ENBREL [Suspect]
     Dosage: UNK
  2. XELJANZ [Suspect]
     Indication: RHEUMATOID ARTHRITIS
     Dosage: 5 MG, TWICE DAILY
     Route: 048
     Dates: start: 201211, end: 201309
  3. HUMIRA [Suspect]
     Dosage: UNK
  4. OXYCODONE/APAP [Concomitant]
     Dosage: UNK
  5. METHYLPREDNISOLONE [Concomitant]
     Dosage: 8 MG, FOUR TIMES DAILY, FOR SEVERAL MONTHS
  6. PLAQUENIL [Concomitant]
     Dosage: UNK
  7. CELEBREX [Concomitant]
     Dosage: UNK
  8. MINOCIN [Concomitant]
     Dosage: UNK
  9. ZEBETA [Concomitant]
     Dosage: UNK
  10. TOPAMAX [Concomitant]
     Dosage: UNK

REACTIONS (2)
  - Weight increased [Recovering/Resolving]
  - Drug hypersensitivity [Unknown]
